FAERS Safety Report 4514159-9 (Version None)
Quarter: 2004Q4

REPORT INFORMATION
  Report Type: 
  Country: None (occurrence: None)
  Receive Date: 20041124
  Receipt Date: 20041108
  Transmission Date: 20050328
  Serious: Yes (Death)
  Sender: FDA-Public Use
  Company Number: US_0411107932

PATIENT
  Age: 45 Year
  Sex: Male
  Weight: 57 kg

DRUGS (4)
  1. FLUOXETINE HCL [Suspect]
  2. COCAINE [Concomitant]
  3. BUPRENORPHINE HCL [Concomitant]
  4. MARIJUANA [Concomitant]

REACTIONS (8)
  - CARDIOVASCULAR DISORDER [None]
  - CORONARY ARTERY ATHEROSCLEROSIS [None]
  - DRUG ABUSER [None]
  - INJECTION SITE REACTION [None]
  - MYOCARDIAL FIBROSIS [None]
  - OVERDOSE [None]
  - RENAL ARTERITIS [None]
  - WOUND [None]
